FAERS Safety Report 7942266-7 (Version None)
Quarter: 2011Q4

REPORT INFORMATION
  Report Type: 
  Country: None (occurrence: None)
  Receive Date: 20111128
  Receipt Date: 20110830
  Transmission Date: 20120403
  Serious: No
  Sender: FDA-Public Use
  Company Number: US-ABBOTT-11P-163-0851605-00

PATIENT
  Age: 62 Year
  Sex: Male
  Weight: 72.64 kg

DRUGS (6)
  1. LITHIUM [Concomitant]
     Indication: DEPRESSION
  2. LITHIUM [Concomitant]
     Indication: ANXIETY
  3. LIPITOR [Concomitant]
     Indication: BLOOD CHOLESTEROL INCREASED
  4. ANDROGEL [Suspect]
     Indication: BLOOD TESTOSTERONE DECREASED
     Dosage: 3 PUMPS DAILY
     Route: 062
     Dates: start: 20060101, end: 20110101
  5. LOVAZA [Concomitant]
     Indication: BLOOD TRIGLYCERIDES INCREASED
  6. CLONOPIN [Concomitant]
     Indication: DEPRESSION

REACTIONS (3)
  - ASTHENIA [None]
  - LIBIDO DECREASED [None]
  - DRUG INEFFECTIVE [None]
